FAERS Safety Report 12092571 (Version 1)
Quarter: 2016Q1

REPORT INFORMATION
  Report Type: Spontaneous
  Country: BR (occurrence: BR)
  Receive Date: 20160219
  Receipt Date: 20160219
  Transmission Date: 20160526
  Serious: Yes (Other)
  Sender: FDA-Public Use
  Company Number: BR-ACCORD-037936

PATIENT
  Age: 60 Year
  Sex: Female
  Weight: 66.5 kg

DRUGS (5)
  1. NAUSETRON [Concomitant]
     Indication: PROPHYLAXIS
     Route: 042
     Dates: start: 20160127, end: 20160127
  2. RANITIDINE [Concomitant]
     Active Substance: RANITIDINE\RANITIDINE HYDROCHLORIDE
     Indication: PROPHYLAXIS
     Dosage: RANITIDINE 50 MG/2 ML, 1 AMPOULE
     Route: 042
     Dates: start: 20160127, end: 20160127
  3. PACLITAXEL/PACLITAXEL LIPOSOME [Suspect]
     Active Substance: PACLITAXEL
     Indication: BREAST CANCER
     Dosage: PATIENT RECEIVED THIRD CYCLE ON 27-JAN-2016.
     Route: 042
     Dates: start: 20160127, end: 20160127
  4. DIPHENHYDRAMINE. [Concomitant]
     Active Substance: DIPHENHYDRAMINE
     Indication: PROPHYLAXIS
     Dosage: S.F. 100 ML + DIPHENIDRAMINE, 1 AMPOULE
     Route: 042
     Dates: start: 20160127, end: 20160127
  5. DEXAMETHASONE. [Concomitant]
     Active Substance: DEXAMETHASONE
     Indication: PROPHYLAXIS
     Dosage: DEXAMETHASONE + S.F. 100 ML
     Route: 042
     Dates: start: 20160127, end: 20160127

REACTIONS (2)
  - Asphyxia [Recovered/Resolved]
  - Flushing [Recovered/Resolved]

NARRATIVE: CASE EVENT DATE: 20160127
